FAERS Safety Report 4972141-1 (Version None)
Quarter: 2006Q2

REPORT INFORMATION
  Report Type: 
  Country: None (occurrence: None)
  Receive Date: 20060413
  Receipt Date: 20060323
  Transmission Date: 20061013
  Serious: Yes (Death)
  Sender: FDA-Public Use
  Company Number: GB-NOVOPROD-251838

PATIENT
  Sex: Female

DRUGS (2)
  1. NOVOSEVEN [Suspect]
     Indication: OPERATIVE HAEMORRHAGE
     Dosage: 90 UG/KG, BID
  2. FRESH FROZEN PLASMA [Concomitant]

REACTIONS (6)
  - CARDIAC DISORDER [None]
  - INTESTINAL PERFORATION [None]
  - LARGE INTESTINE PERFORATION [None]
  - POST PROCEDURAL COMPLICATION [None]
  - SEPSIS [None]
  - SUBCLAVIAN VEIN THROMBOSIS [None]
